FAERS Safety Report 8947335 (Version 1)
Quarter: 2012Q4

REPORT INFORMATION
  Report Type: 
  Country: AU (occurrence: AU)
  Receive Date: 20121205
  Receipt Date: 20121205
  Transmission Date: 20130627
  Serious: Yes (Life-Threatening, Hospitalization)
  Sender: FDA-Public Use
  Company Number: AU-009507513-1211AUS012550

PATIENT
  Age: 51 Year
  Sex: Male
  Weight: 103 kg

DRUGS (11)
  1. TEMOZOLOMIDE [Suspect]
     Indication: GLIOBLASTOMA
     Dosage: 160 MG ON DAYS 1-5
     Route: 048
     Dates: start: 20100719, end: 20101111
  2. TEMOZOLOMIDE [Suspect]
     Dosage: 80 MG ON DAYS 1-5
     Route: 048
     Dates: end: 20101115
  3. TEMOZOLOMIDE [Suspect]
     Dosage: unknown MG ON DAYS 1-5
     Route: 048
  4. TEMOZOLOMIDE [Suspect]
     Dosage: 220 MG ON DAYS 1-5
     Route: 048
     Dates: start: 20101213
  5. MICARDIS PLUS [Concomitant]
     Dosage: 1 DF, 2000 E
     Dates: start: 20001109
  6. ONDANSETRON [Concomitant]
     Dosage: 4 mg, prn
     Dates: start: 20100719
  7. ONDANSETRON [Concomitant]
     Dosage: 8 mg, qd
     Dates: start: 20101025
  8. SULFAMETHOXAZOLE (+) TRIMETHOPRIM [Concomitant]
     Dosage: 1 DF, 2000 E
  9. ACETAMINOPHEN [Concomitant]
     Dosage: 2 DF, qd
     Dates: start: 20100817, end: 20100818
  10. CLEXANE (ENOXAPARIN SODIUM) [Concomitant]
     Dosage: 40 mg, qd
     Dates: start: 20100818, end: 20100818
  11. DEXAMETHASONE [Concomitant]
     Dosage: UNK, prn
     Dates: start: 20100915

REACTIONS (3)
  - Thrombocytopenia [Not Recovered/Not Resolved]
  - Musculoskeletal chest pain [Recovered/Resolved with Sequelae]
  - Lobar pneumonia [Recovered/Resolved]
